FAERS Safety Report 6263602-6 (Version None)
Quarter: 2009Q3

REPORT INFORMATION
  Report Type: 
  Country: None (occurrence: None)
  Receive Date: 20090710
  Receipt Date: 20090528
  Transmission Date: 20100115
  Serious: No
  Sender: FDA-Public Use
  Company Number: A0787125A

PATIENT
  Age: 60 Year
  Sex: Female

DRUGS (3)
  1. TYKERB [Suspect]
     Dosage: 5TAB PER DAY
     Route: 048
     Dates: start: 20090429
  2. XELODA [Concomitant]
  3. RANITIDINE [Concomitant]

REACTIONS (2)
  - LOCAL SWELLING [None]
  - SKIN DISCOLOURATION [None]
